FAERS Safety Report 7779730-X (Version None)
Quarter: 2011Q3

REPORT INFORMATION
  Report Type: 
  Country: None (occurrence: None)
  Receive Date: 20110927
  Receipt Date: 20110913
  Transmission Date: 20111222
  Serious: Yes (Hospitalization, Other)
  Sender: FDA-Public Use
  Company Number: US-RANBAXY-2011US-48385

PATIENT

DRUGS (2)
  1. NAPROXEN [Suspect]
     Indication: BACK PAIN
     Dosage: 200MG, BID
     Route: 065
  2. METHADONE HCL [Concomitant]
     Indication: BACK PAIN
     Dosage: 10 MG, TID
     Route: 065

REACTIONS (1)
  - INTESTINAL OBSTRUCTION [None]
